FAERS Safety Report 8298058-5 (Version None)
Quarter: 2012Q2

REPORT INFORMATION
  Report Type: 
  Country: None (occurrence: None)
  Receive Date: 20120419
  Receipt Date: 20120329
  Transmission Date: 20120825
  Serious: Yes (Hospitalization)
  Sender: FDA-Public Use
  Company Number: US-BAXTER-2012BAX001559

PATIENT
  Sex: Male

DRUGS (3)
  1. DIANEAL [Suspect]
     Indication: PERITONEAL DIALYSIS
     Route: 033
     Dates: start: 20091210
  2. DIANEAL [Suspect]
     Route: 033
     Dates: start: 20091210
  3. DIANEAL [Suspect]
     Route: 033
     Dates: start: 20091210

REACTIONS (1)
  - ADVERSE DRUG REACTION [None]
